FAERS Safety Report 9748009 (Version 2)
Quarter: 2013Q4

REPORT INFORMATION
  Report Type: Spontaneous
  Country: US (occurrence: US)
  Receive Date: 20131212
  Receipt Date: 20131212
  Transmission Date: 20140711
  Serious: No
  Sender: FDA-Public Use
  Company Number: US-TEVA-385974USA

PATIENT
  Age: 38 Year
  Sex: Female
  Weight: 72.64 kg

DRUGS (1)
  1. PARAGARD 380A [Suspect]
     Indication: CONTRACEPTION
     Route: 015
     Dates: start: 20120419, end: 20121130

REACTIONS (4)
  - Malaise [Unknown]
  - Pelvic pain [Unknown]
  - Feeling abnormal [Unknown]
  - Metrorrhagia [Unknown]
